FAERS Safety Report 5500475-0 (Version None)
Quarter: 2007Q4

REPORT INFORMATION
  Report Type: 
  Country: None (occurrence: None)
  Receive Date: 20071018
  Receipt Date: 20070314
  Transmission Date: 20080405
  Serious: Yes (Other)
  Sender: FDA-Public Use
  Company Number: 2007020495

PATIENT
  Age: 51 Year
  Sex: Female
  Weight: 98.4 kg

DRUGS (8)
  1. NEURONTIN [Suspect]
     Indication: NEURALGIA
     Dosage: 900 MG (300 MG, 3 IN 1 D)
     Dates: start: 20070303
  2. NOVOLOG [Concomitant]
  3. NOVOLIN N [Concomitant]
  4. COREG [Concomitant]
  5. LISINOPRIL [Concomitant]
  6. FUROSEMIDE [Concomitant]
  7. POTASSIUM (POTASSIUM) [Concomitant]
  8. CRESTOR [Concomitant]

REACTIONS (4)
  - HYPERGLYCAEMIA [None]
  - INCREASED APPETITE [None]
  - NEURALGIA [None]
  - SOMNOLENCE [None]
